FAERS Safety Report 5542140-X (Version None)
Quarter: 2007Q4

REPORT INFORMATION
  Report Type: 
  Country: None (occurrence: None)
  Receive Date: 20071210
  Receipt Date: 20070828
  Transmission Date: 20080405
  Serious: No
  Sender: FDA-Public Use
  Company Number: US-AMGEN-KDL240782

PATIENT
  Sex: Male

DRUGS (5)
  1. ENBREL [Suspect]
     Indication: ANKYLOSING SPONDYLITIS
     Dates: start: 20040101
  2. METFORMIN HCL [Concomitant]
  3. PROPRANOLOL [Concomitant]
  4. LOVASTATIN [Concomitant]
  5. OXYCODONE HCL [Concomitant]

REACTIONS (1)
  - UPPER RESPIRATORY TRACT INFECTION [None]
